FAERS Safety Report 17051380 (Version 1)
Quarter: 2019Q4

REPORT INFORMATION
  Report Type: Other
  Country: FR (occurrence: FR)
  Receive Date: 20191120
  Receipt Date: 20191120
  Transmission Date: 20200122
  Serious: Yes (Life-Threatening)
  Sender: FDA-Public Use
  Company Number: FR-CELLTRION INC.-2019FR026490

PATIENT

DRUGS (1)
  1. TRUXIMA [Suspect]
     Active Substance: RITUXIMAB-ABBS
     Indication: WALDENSTROM^S MACROGLOBULINAEMIA
     Dosage: 86 MG
     Route: 041
     Dates: start: 20191008, end: 20191008

REACTIONS (4)
  - Product use in unapproved indication [Unknown]
  - Renal pain [Recovered/Resolved]
  - Hypoxia [Recovered/Resolved]
  - Dyspnoea [Recovered/Resolved]

NARRATIVE: CASE EVENT DATE: 20191008
